FAERS Safety Report 14400266 (Version 2)
Quarter: 2018Q2

REPORT INFORMATION
  Report Type: Spontaneous
  Country: US (occurrence: US)
  Receive Date: 20180117
  Receipt Date: 20180502
  Transmission Date: 20180711
  Serious: No
  Sender: FDA-Public Use
  Company Number: US-JNJFOC-20171228314

PATIENT
  Age: 61 Year
  Sex: Male
  Weight: 104.33 kg

DRUGS (2)
  1. ZYTIGA [Suspect]
     Active Substance: ABIRATERONE ACETATE
     Indication: PROSTATE CANCER
     Dosage: EVERY MORNING
     Route: 048
     Dates: start: 201802
  2. ZYTIGA [Suspect]
     Active Substance: ABIRATERONE ACETATE
     Indication: PROSTATE CANCER
     Route: 048
     Dates: start: 20171218

REACTIONS (9)
  - Weight increased [Not Recovered/Not Resolved]
  - Headache [Not Recovered/Not Resolved]
  - Amnesia [Not Recovered/Not Resolved]
  - Cardiac disorder [Unknown]
  - Nasopharyngitis [Not Recovered/Not Resolved]
  - Bone pain [Not Recovered/Not Resolved]
  - Dizziness [Unknown]
  - Oropharyngeal pain [Not Recovered/Not Resolved]
  - Myalgia [Not Recovered/Not Resolved]

NARRATIVE: CASE EVENT DATE: 20171218
